FAERS Safety Report 5642514-2 (Version None)
Quarter: 2008Q1

REPORT INFORMATION
  Report Type: 
  Country: None (occurrence: None)
  Receive Date: 20080227
  Receipt Date: 20080227
  Transmission Date: 20080703
  Serious: Yes (Other)
  Sender: FDA-Public Use
  Company Number: None

PATIENT
  Age: 65 Year
  Sex: Female

DRUGS (4)
  1. FOSAMAX [Suspect]
     Indication: OSTEOPENIA
     Dosage: 70MG WEEKLY  3 1/2 YRS
  2. PLAVIX [Concomitant]
  3. EFFEXOR [Concomitant]
  4. NEXIUM [Concomitant]

REACTIONS (1)
  - OSTEONECROSIS [None]
